FAERS Safety Report 25766176 (Version 1)
Quarter: 2025Q3

REPORT INFORMATION
  Report Type: Spontaneous
  Country: US (occurrence: US)
  Receive Date: 20250905
  Receipt Date: 20250905
  Transmission Date: 20251021
  Serious: No
  Sender: DOMPE FARMACEUTICI
  Company Number: US-FARMAPROD-202408-2870

PATIENT
  Age: 77 Year
  Sex: Female

DRUGS (10)
  1. OXERVATE [Suspect]
     Active Substance: CENEGERMIN-BKBJ
     Indication: Neurotrophic keratopathy
     Route: 047
     Dates: start: 20240730, end: 20240809
  2. CLONAZEPAM [Concomitant]
     Active Substance: CLONAZEPAM
  3. LYRICA [Concomitant]
     Active Substance: PREGABALIN
  4. LORATADINE [Concomitant]
     Active Substance: LORATADINE
  5. PLAQUENIL [Concomitant]
     Active Substance: HYDROXYCHLOROQUINE SULFATE
  6. XIIDRA [Concomitant]
     Active Substance: LIFITEGRAST
  7. SYSTANE COMPLETE PF [Concomitant]
     Active Substance: PROPYLENE GLYCOL
  8. AZELASTINE [Concomitant]
     Active Substance: AZELASTINE
  9. CLONIDINE [Concomitant]
     Active Substance: CLONIDINE
  10. PREGABALIN [Concomitant]
     Active Substance: PREGABALIN

REACTIONS (8)
  - Glossodynia [Not Recovered/Not Resolved]
  - Eyelid pain [Not Recovered/Not Resolved]
  - Odynophagia [Not Recovered/Not Resolved]
  - Vision blurred [Not Recovered/Not Resolved]
  - Chills [Not Recovered/Not Resolved]
  - Eye swelling [Unknown]
  - Eye pain [Unknown]
  - Mouth ulceration [Unknown]

NARRATIVE: CASE EVENT DATE: 20240801
